FAERS Safety Report 6506635-4 (Version None)
Quarter: 2009Q4

REPORT INFORMATION
  Report Type: 
  Country: None (occurrence: None)
  Receive Date: 20091216
  Receipt Date: 20091203
  Transmission Date: 20100525
  Serious: Yes (Other)
  Sender: FDA-Public Use
  Company Number: 233763J09USA

PATIENT
  Age: 51 Year
  Sex: Male

DRUGS (6)
  1. REBIF [Suspect]
     Indication: MULTIPLE SCLEROSIS
     Dosage: 22 MCG, 3 IN 1 WEEKS, SUBCUTANEOUS
     Route: 058
     Dates: start: 20091118
  2. VERAPAMIL [Concomitant]
  3. HYDROCHLOROTHIAZIDE [Concomitant]
  4. LOPID (GEMFIBROXZIL) [Concomitant]
  5. PRAVACHOL [Concomitant]
  6. HYDROCODONE (HYDROCODONE) [Concomitant]

REACTIONS (9)
  - CAROTID ARTERY OCCLUSION [None]
  - HEADACHE [None]
  - INJECTION SITE ERYTHEMA [None]
  - NASAL CONGESTION [None]
  - NASOPHARYNGITIS [None]
  - NAUSEA [None]
  - PYREXIA [None]
  - RHINORRHOEA [None]
  - SWELLING FACE [None]
